FAERS Safety Report 18781586 (Version 7)
Quarter: 2021Q3

REPORT INFORMATION
  Report Type: Spontaneous
  Country: GB (occurrence: GB)
  Receive Date: 20210125
  Receipt Date: 20210831
  Transmission Date: 20211014
  Serious: Yes (Life-Threatening, Hospitalization, Disabling, Other)
  Sender: FDA-Public Use
  Company Number: GB-MYLANLABS-2019M1096872

PATIENT
  Age: 22 Year
  Sex: Male

DRUGS (10)
  1. QUETIAPINE. [Suspect]
     Active Substance: QUETIAPINE
     Indication: PRODUCT USED FOR UNKNOWN INDICATION
     Dosage: UNK
     Route: 048
     Dates: start: 2011, end: 2012
  2. DIAZEPAM. [Concomitant]
     Active Substance: DIAZEPAM
     Indication: PRODUCT USED FOR UNKNOWN INDICATION
     Dosage: UNK
  3. INSULIN [Concomitant]
     Active Substance: INSULIN NOS
     Indication: PRODUCT USED FOR UNKNOWN INDICATION
     Dosage: UNK
  4. PROCYCLIDINE [Suspect]
     Active Substance: PROCYCLIDINE
     Indication: TARDIVE DYSKINESIA
     Dosage: UNK
     Route: 065
  5. QUETIAPINE. [Suspect]
     Active Substance: QUETIAPINE
     Dosage: UNK
     Route: 048
     Dates: start: 2012
  6. ARIPIPRAZOLE. [Concomitant]
     Active Substance: ARIPIPRAZOLE
     Indication: PRODUCT USED FOR UNKNOWN INDICATION
     Dosage: UNK
  7. SEROQUEL [Suspect]
     Active Substance: QUETIAPINE FUMARATE
     Indication: TARDIVE DYSKINESIA
     Dosage: UNK
     Route: 048
  8. SEROQUEL [Suspect]
     Active Substance: QUETIAPINE FUMARATE
     Dosage: UNK
  9. METFORMIN [Concomitant]
     Active Substance: METFORMIN HYDROCHLORIDE
     Indication: PRODUCT USED FOR UNKNOWN INDICATION
     Dosage: UNK
  10. CLARITHROMYCIN. [Concomitant]
     Active Substance: CLARITHROMYCIN
     Indication: PRODUCT USED FOR UNKNOWN INDICATION
     Dosage: UNK

REACTIONS (105)
  - Neuropathy peripheral [Unknown]
  - Blood triglycerides increased [Recovered/Resolved]
  - Illness [Unknown]
  - Tooth erosion [Not Recovered/Not Resolved]
  - Sleep disorder [Unknown]
  - Alopecia [Not Recovered/Not Resolved]
  - Cramp-fasciculation syndrome [Unknown]
  - Immune system disorder [Not Recovered/Not Resolved]
  - Muscle atrophy [Unknown]
  - Pallor [Unknown]
  - Muscle twitching [Not Recovered/Not Resolved]
  - Hepatic steatosis [Unknown]
  - Fine motor skill dysfunction [Unknown]
  - Loss of personal independence in daily activities [Not Recovered/Not Resolved]
  - Back pain [Not Recovered/Not Resolved]
  - Emotional distress [Not Recovered/Not Resolved]
  - Psychotic disorder [Unknown]
  - Nervous system disorder [Not Recovered/Not Resolved]
  - Tardive dyskinesia [Not Recovered/Not Resolved]
  - Dyspnoea [Not Recovered/Not Resolved]
  - Sleep terror [Unknown]
  - Liver disorder [Unknown]
  - Muscle spasms [Not Recovered/Not Resolved]
  - Tooth disorder [Unknown]
  - Myalgia [Not Recovered/Not Resolved]
  - Delusional disorder, unspecified type [Not Recovered/Not Resolved]
  - Fear of death [Unknown]
  - Paranoia [Not Recovered/Not Resolved]
  - Feeling abnormal [Not Recovered/Not Resolved]
  - Facial pain [Not Recovered/Not Resolved]
  - Joint stiffness [Unknown]
  - Brain injury [Unknown]
  - Dystonia [Unknown]
  - Hypoaesthesia [Not Recovered/Not Resolved]
  - Contusion [Unknown]
  - Tremor [Not Recovered/Not Resolved]
  - Anger [Not Recovered/Not Resolved]
  - Depression [Unknown]
  - Euphoric mood [Unknown]
  - Memory impairment [Unknown]
  - Circumstance or information capable of leading to medication error [Unknown]
  - Psychological trauma [Not Recovered/Not Resolved]
  - Accidental overdose [Unknown]
  - Chest injury [Not Recovered/Not Resolved]
  - Dyskinesia [Not Recovered/Not Resolved]
  - Suicidal ideation [Unknown]
  - Frontal lobe epilepsy [Unknown]
  - Oxygen saturation decreased [Not Recovered/Not Resolved]
  - Palpitations [Not Recovered/Not Resolved]
  - Pain in jaw [Unknown]
  - Asthenia [Unknown]
  - Muscle tightness [Not Recovered/Not Resolved]
  - Grip strength decreased [Not Recovered/Not Resolved]
  - Condition aggravated [Unknown]
  - Shoulder deformity [Not Recovered/Not Resolved]
  - Stridor [Not Recovered/Not Resolved]
  - Concussion [Unknown]
  - Musculoskeletal stiffness [Not Recovered/Not Resolved]
  - Confusional state [Unknown]
  - Malaise [Not Recovered/Not Resolved]
  - Allergy to chemicals [Unknown]
  - Head injury [Not Recovered/Not Resolved]
  - Diabetes mellitus [Unknown]
  - Long QT syndrome [Unknown]
  - Headache [Not Recovered/Not Resolved]
  - Sleep apnoea syndrome [Unknown]
  - Fatigue [Not Recovered/Not Resolved]
  - Weight increased [Recovered/Resolved]
  - Abdominal pain [Not Recovered/Not Resolved]
  - Sensation of foreign body [Unknown]
  - Eructation [Not Recovered/Not Resolved]
  - Feeling hot [Unknown]
  - Tachycardia [Not Recovered/Not Resolved]
  - Serotonin syndrome [Unknown]
  - Hepatic enzyme increased [Unknown]
  - Pain [Unknown]
  - Blood cholesterol increased [Recovered/Resolved]
  - Eye disorder [Not Recovered/Not Resolved]
  - Muscle contractions involuntary [Not Recovered/Not Resolved]
  - Extrapyramidal disorder [Not Recovered/Not Resolved]
  - Mononeuropathy [Not Recovered/Not Resolved]
  - Gait disturbance [Not Recovered/Not Resolved]
  - Dysphonia [Not Recovered/Not Resolved]
  - Muscle tightness [Unknown]
  - Dizziness [Not Recovered/Not Resolved]
  - Bedridden [Unknown]
  - Polyneuropathy [Unknown]
  - Angina pectoris [Unknown]
  - White blood cell count decreased [Recovered/Resolved]
  - Metabolic syndrome [Unknown]
  - Tongue biting [Not Recovered/Not Resolved]
  - Nerve injury [Not Recovered/Not Resolved]
  - Weight decreased [Unknown]
  - Gynaecomastia [Unknown]
  - Mood swings [Not Recovered/Not Resolved]
  - Irritability [Not Recovered/Not Resolved]
  - Anxiety [Unknown]
  - Dystonic tremor [Unknown]
  - Toxicity to various agents [Unknown]
  - Hallucination [Unknown]
  - Pneumonia [Unknown]
  - Mental disorder [Unknown]
  - Movement disorder [Unknown]
  - Hypertension [Not Recovered/Not Resolved]
  - Nerve compression [Not Recovered/Not Resolved]

NARRATIVE: CASE EVENT DATE: 2011
